FAERS Safety Report 4499351-4 (Version None)
Quarter: 2004Q4

REPORT INFORMATION
  Report Type: 
  Country: None (occurrence: None)
  Receive Date: 20041111
  Receipt Date: 20041011
  Transmission Date: 20050328
  Serious: Yes (Life-Threatening, Other)
  Sender: FDA-Public Use
  Company Number: US-MERCK-0410USA01806

PATIENT
  Age: 43 Year
  Sex: Female
  Weight: 82 kg

DRUGS (2)
  1. MINTEZOL [Suspect]
     Indication: HOOKWORM INFECTION
     Route: 048
     Dates: start: 20041007, end: 20041008
  2. MINTEZOL [Suspect]
     Indication: CUTANEOUS LARVA MIGRANS
     Route: 048
     Dates: start: 20041007, end: 20041008

REACTIONS (5)
  - ADVERSE EVENT [None]
  - CONVULSION [None]
  - DIZZINESS [None]
  - SKIN ODOUR ABNORMAL [None]
  - VOMITING [None]
